FAERS Safety Report 10602098 (Version 1)
Quarter: 2014Q4

REPORT INFORMATION
  Report Type: Report from Study
  Country: US (occurrence: US)
  Receive Date: 20141124
  Receipt Date: 20141124
  Transmission Date: 20150529
  Serious: Yes (Other)
  Sender: FDA-Public Use
  Company Number: US-BRISTOL-MYERS SQUIBB COMPANY-21604459

PATIENT
  Weight: 3.55 kg

DRUGS (9)
  1. MULTIVITAMINS [Suspect]
     Active Substance: VITAMINS
     Dosage: 2 PILL
     Route: 064
     Dates: start: 20130325, end: 20131207
  2. ORENCIA [Suspect]
     Active Substance: ABATACEPT
     Route: 064
     Dates: start: 20130325, end: 20131207
  3. UNISOM SLEEPTABS [Suspect]
     Active Substance: DOXYLAMINE SUCCINATE
     Dosage: 0.5 PILL
     Route: 064
     Dates: start: 20130601, end: 20131207
  4. TUMS [Suspect]
     Active Substance: CALCIUM CARBONATE
     Dosage: 1.5 PILL
     Route: 064
     Dates: start: 20130325, end: 20131207
  5. FOLIC ACID. [Suspect]
     Active Substance: FOLIC ACID
     Route: 064
     Dates: start: 20130429, end: 20131207
  6. CAFFEINE. [Suspect]
     Active Substance: CAFFEINE
     Route: 064
     Dates: start: 20130325, end: 20131207
  7. ZOFRAN [Suspect]
     Active Substance: ONDANSETRON HYDROCHLORIDE
     Dosage: 1 PILL
     Route: 064
     Dates: start: 20130507, end: 20130716
  8. OMEPRAZOLE. [Suspect]
     Active Substance: OMEPRAZOLE
     Dosage: 1 PILL
     Route: 064
     Dates: start: 20130325, end: 20131207
  9. TYLENOL [Suspect]
     Active Substance: ACETAMINOPHEN
     Dosage: 1 PILL
     Route: 064
     Dates: start: 20130325, end: 20131207

REACTIONS (2)
  - Foetal exposure during pregnancy [Recovered/Resolved]
  - Atrial septal defect [Unknown]
